FAERS Safety Report 15030732 (Version 9)
Quarter: 2021Q1

REPORT INFORMATION
  Report Type: Spontaneous
  Country: BG (occurrence: BG)
  Receive Date: 20180619
  Receipt Date: 20210117
  Transmission Date: 20210419
  Serious: Yes (Other)
  Sender: FDA-Public Use
  Company Number: PHHY2018BG023316

PATIENT
  Age: 50 Year
  Sex: Male

DRUGS (12)
  1. LUTETIUM (LU 177) [Suspect]
     Active Substance: LUTETIUM LU-177
     Indication: PROSTATE CANCER
     Dosage: UNK, (4 APPLICATIONS, BEGIN THERAPY WHEN THERE ARE METASTASES IN THE SOFT TISSUES)
     Route: 065
  2. ABIRATERONE. [Suspect]
     Active Substance: ABIRATERONE ACETATE
     Indication: PROSTATE CANCER
     Dosage: 1000 MG, QD
     Route: 048
     Dates: start: 201705
  3. DOCETAXEL. [Suspect]
     Active Substance: DOCETAXEL
     Indication: PROSTATE CANCER
     Dosage: 5 COURSES; BECAUSE OF THE RISE IN PSA
     Route: 065
  4. LEUPRORELIN ACETATE [Suspect]
     Active Substance: LEUPROLIDE ACETATE
     Indication: PROSTATE CANCER
     Dosage: UNK DF
     Route: 065
  5. BICALUTAMIDE. [Suspect]
     Active Substance: BICALUTAMIDE
     Indication: PROSTATE CANCER
     Dosage: 50 MG, QID
     Route: 065
     Dates: start: 20141029
  6. RADIUM RA 223 DICHLORIDE [Suspect]
     Active Substance: RADIUM RA-223 DICHLORIDE
     Indication: PROSTATE CANCER
     Dosage: 4.4 MBQ, UNK
     Route: 042
     Dates: start: 20170418, end: 20170712
  7. DOCETAXEL. [Suspect]
     Active Substance: DOCETAXEL
     Dosage: 50 MG, QD
     Route: 065
  8. ABIRATERONE. [Suspect]
     Active Substance: ABIRATERONE ACETATE
     Dosage: 100 MG, QD
     Route: 048
  9. DENOSUMAB [Suspect]
     Active Substance: DENOSUMAB
     Indication: PROSTATE CANCER
     Dosage: UNK
     Route: 065
  10. CABAZITAXEL [Suspect]
     Active Substance: CABAZITAXEL
     Indication: PROSTATE CANCER
     Dosage: UNK
     Route: 065
     Dates: start: 20160519, end: 20170626
  11. LEUPRORELIN [Suspect]
     Active Substance: LEUPROLIDE ACETATE
     Indication: PROSTATE CANCER
     Dosage: UNK
     Route: 065
     Dates: start: 20141029
  12. ENZALUTAMIDE [Suspect]
     Active Substance: ENZALUTAMIDE
     Indication: PROSTATE CANCER
     Dosage: 160 MG, QD (AFTER INEFFECTIVE TREATMENT NEW GENERATION IS INCLUDED ANTIANDROGEN)
     Route: 065

REACTIONS (9)
  - Prostatic specific antigen increased [Unknown]
  - Fatigue [Unknown]
  - Prostate cancer [Unknown]
  - Metastases to lung [Unknown]
  - Drug ineffective [Unknown]
  - Drug resistance [Unknown]
  - Malignant neoplasm progression [Unknown]
  - Prostate cancer recurrent [Unknown]
  - Metastases to soft tissue [Unknown]

NARRATIVE: CASE EVENT DATE: 201706
